FAERS Safety Report 6377737-0 (Version None)
Quarter: 2009Q3

REPORT INFORMATION
  Report Type: 
  Country: None (occurrence: None)
  Receive Date: 20090925
  Receipt Date: 20090916
  Transmission Date: 20100115
  Serious: Yes (Other)
  Sender: FDA-Public Use
  Company Number: US-ROCHE-657296

PATIENT
  Age: 52 Year
  Sex: Female

DRUGS (11)
  1. PEGASYS [Suspect]
     Indication: HEPATITIS C
     Dosage: DOSAGE FORM: 180UG/ 0.5 ML; FORM: PRE-FILLED SYRINGE
     Route: 065
     Dates: start: 20090601
  2. COPEGUS [Suspect]
     Indication: HEPATITIS C
     Dosage: DOSAGE: 4 PER DAY (2 IN AM, 2 IN PM)
     Route: 065
     Dates: start: 20090601
  3. VITAMIN [Concomitant]
     Dosage: DRUG: VITAMINS
  4. CALCIUM [Concomitant]
  5. CITALOPRAM HYDROBROMIDE [Concomitant]
  6. IBUPROFEN [Concomitant]
  7. PROMETHAZINE [Concomitant]
  8. ESTRADIOL [Concomitant]
  9. PROMETRIUM [Concomitant]
  10. KADIAN [Concomitant]
  11. BUPROPION [Concomitant]
     Dosage: DRUG: DUPROPION

REACTIONS (7)
  - ABDOMINAL PAIN UPPER [None]
  - EMOTIONAL DISORDER [None]
  - FATIGUE [None]
  - HEPATIC ENZYME INCREASED [None]
  - INFLUENZA [None]
  - VICTIM OF SEXUAL ABUSE [None]
  - VOMITING [None]
